FAERS Safety Report 14963709 (Version 1)
Quarter: 2018Q2

REPORT INFORMATION
  Report Type: Spontaneous
  Country: FR (occurrence: FR)
  Receive Date: 20180601
  Receipt Date: 20180601
  Transmission Date: 20180711
  Serious: Yes (Other)
  Sender: FDA-Public Use
  Company Number: FR-MYLANLABS-2018M1035273

PATIENT
  Age: 64 Year
  Sex: Male
  Weight: 78 kg

DRUGS (1)
  1. DOXYCYCLINE MYLAN 100 MG, COMPRIM? S?CABLE [Suspect]
     Active Substance: DOXYCYCLINE
     Indication: ABSCESS MANAGEMENT
     Dosage: 1 DF, QD
     Route: 048
     Dates: start: 20171006, end: 20171009

REACTIONS (3)
  - Abdominal pain [Not Recovered/Not Resolved]
  - Abdominal pain upper [Not Recovered/Not Resolved]
  - Haematemesis [Not Recovered/Not Resolved]

NARRATIVE: CASE EVENT DATE: 20171006
